FAERS Safety Report 5776258-3 (Version None)
Quarter: 2008Q2

REPORT INFORMATION
  Report Type: 
  Country: None (occurrence: None)
  Receive Date: 20080618
  Receipt Date: 20080606
  Transmission Date: 20081010
  Serious: Yes (Hospitalization)
  Sender: FDA-Public Use
  Company Number: US-WYE-H04401408

PATIENT
  Sex: Male
  Weight: 15.04 kg

DRUGS (1)
  1. BENEFIX [Suspect]
     Indication: FACTOR IX DEFICIENCY
     Route: 042
     Dates: start: 20080213, end: 20080508

REACTIONS (2)
  - CATHETER SITE HAEMORRHAGE [None]
  - FACTOR IX INHIBITION [None]
